FAERS Safety Report 25330516 (Version 1)
Quarter: 2025Q2

REPORT INFORMATION
  Report Type: Spontaneous
  Country: US (occurrence: None)
  Receive Date: 20250518
  Receipt Date: 20250518
  Transmission Date: 20250716
  Serious: Yes (Hospitalization)
  Sender: FDA-CTU
  Company Number: None

PATIENT
  Age: 21 Year
  Sex: Male
  Weight: 74.25 kg

DRUGS (13)
  1. ZOLOFT [Suspect]
     Active Substance: SERTRALINE HYDROCHLORIDE
     Indication: Anxiety
     Dates: start: 20240412, end: 20241101
  2. LAMICTAL [Concomitant]
     Active Substance: LAMOTRIGINE
  3. BENZTROPHINE [Concomitant]
  4. BUSPIRONE [Concomitant]
     Active Substance: BUSPIRONE HYDROCHLORIDE
  5. REMERON [Concomitant]
     Active Substance: MIRTAZAPINE
  6. SEROQUEL [Concomitant]
     Active Substance: QUETIAPINE FUMARATE
  7. LITHIUM [Concomitant]
     Active Substance: LITHIUM
  8. NIACIN [Concomitant]
     Active Substance: NIACIN
  9. HERBALS [Concomitant]
     Active Substance: HERBALS
  10. HERBALS\WITHANIA SOMNIFERA ROOT [Concomitant]
     Active Substance: HERBALS\WITHANIA SOMNIFERA ROOT
  11. YOHIMBE [Concomitant]
  12. TYROSINE [Concomitant]
     Active Substance: TYROSINE
  13. TAURINE [Concomitant]
     Active Substance: TAURINE

REACTIONS (7)
  - Withdrawal syndrome [None]
  - Paranoia [None]
  - Psychotic disorder [None]
  - Schizophrenia [None]
  - Bipolar disorder [None]
  - Social problem [None]
  - Quality of life decreased [None]

NARRATIVE: CASE EVENT DATE: 20241019
